FAERS Safety Report 23733456 (Version 1)
Quarter: 2024Q2

REPORT INFORMATION
  Report Type: Spontaneous
  Country: CN (occurrence: CN)
  Receive Date: 20240411
  Receipt Date: 20240411
  Transmission Date: 20240716
  Serious: Yes (Hospitalization)
  Sender: FDA-Public Use
  Company Number: CN-Eisai-EC-2024-163249

PATIENT
  Age: 69 Year
  Sex: Female
  Weight: 45 kg

DRUGS (2)
  1. PERAMPANEL [Suspect]
     Active Substance: PERAMPANEL
     Indication: Epilepsy
     Route: 048
     Dates: start: 20240227, end: 20240307
  2. PERAMPANEL [Suspect]
     Active Substance: PERAMPANEL
     Route: 048
     Dates: start: 20240308

REACTIONS (6)
  - Asthma [Unknown]
  - Seizure [Unknown]
  - Cognitive disorder [Recovering/Resolving]
  - Gait disturbance [Recovering/Resolving]
  - Muscular weakness [Recovering/Resolving]
  - Dyspraxia [Recovering/Resolving]

NARRATIVE: CASE EVENT DATE: 20240301
